FAERS Safety Report 6849201-3 (Version None)
Quarter: 2010Q3

REPORT INFORMATION
  Report Type: 
  Country: None (occurrence: None)
  Receive Date: 20100716
  Receipt Date: 20100707
  Transmission Date: 20110219
  Serious: Yes (Life-Threatening, Hospitalization)
  Sender: FDA-Public Use
  Company Number: US-CELGENEUS-163-21880-10070913

PATIENT
  Sex: Female

DRUGS (9)
  1. REVLIMID [Suspect]
     Route: 048
     Dates: start: 20090904, end: 20100625
  2. DIGOXIN [Concomitant]
     Indication: ATRIAL FIBRILLATION
     Route: 065
  3. CARVEDILOL [Concomitant]
     Indication: HYPERTENSION
     Route: 065
  4. VIDOCIN [Concomitant]
     Indication: PAIN
     Route: 065
  5. DECADRON [Concomitant]
     Route: 065
     Dates: start: 20090904
  6. ASPIRIN [Concomitant]
     Route: 065
     Dates: start: 20090904
  7. ZOLEDRONATE [Concomitant]
     Route: 065
     Dates: start: 20100610
  8. METFORMIN HCL [Concomitant]
     Route: 065
  9. KEFLEX [Concomitant]
     Indication: CELLULITIS
     Route: 065
     Dates: start: 20100701

REACTIONS (1)
  - THROMBOTIC THROMBOCYTOPENIC PURPURA [None]
